FAERS Safety Report 25422669 (Version 1)
Quarter: 2025Q2

REPORT INFORMATION
  Report Type: Spontaneous
  Country: FR (occurrence: FR)
  Receive Date: 20250611
  Receipt Date: 20250611
  Transmission Date: 20250717
  Serious: Yes (Life-Threatening)
  Sender: PFIZER
  Company Number: FR-002147023-PHHY2018FR169935

PATIENT
  Age: 54 Year
  Sex: Female

DRUGS (11)
  1. CYTARABINE [Suspect]
     Active Substance: CYTARABINE
     Indication: Acute myeloid leukaemia
     Route: 042
     Dates: start: 20100817, end: 20110219
  2. RITUXIMAB [Suspect]
     Active Substance: RITUXIMAB
     Indication: Epstein-Barr virus infection
     Route: 042
     Dates: start: 20110331, end: 20110421
  3. MYCOPHENOLATE MOFETIL [Suspect]
     Active Substance: MYCOPHENOLATE MOFETIL
     Indication: Transplant
     Route: 048
     Dates: start: 201103, end: 20110411
  4. FLUDARABINE [Suspect]
     Active Substance: FLUDARABINE PHOSPHATE
     Indication: Acute myeloid leukaemia
     Dosage: 30 MG/M2, 1X/DAY
     Route: 042
     Dates: start: 20110216, end: 20110219
  5. CYCLOSPORINE [Suspect]
     Active Substance: CYCLOSPORINE
     Indication: Prophylaxis
     Dosage: 1.2 ML, 1X/DAY
     Route: 048
     Dates: start: 201103, end: 20110616
  6. DAUNORUBICIN [Suspect]
     Active Substance: DAUNORUBICIN
     Indication: Acute myeloid leukaemia
     Dosage: 60 MG/M2, 1X/DAY
     Route: 042
     Dates: start: 20100817, end: 20100819
  7. BUSULFAN [Suspect]
     Active Substance: BUSULFAN
     Indication: Acute myeloid leukaemia
     Route: 042
     Dates: start: 20110210, end: 20110212
  8. THYMOGLOBULINE [Suspect]
     Active Substance: LAPINE T-LYMPHOCYTE IMMUNE GLOBULIN
     Indication: Acute myeloid leukaemia
     Route: 042
     Dates: start: 20110227, end: 20110301
  9. LENOGRASTIM [Suspect]
     Active Substance: LENOGRASTIM
     Indication: Prophylaxis
     Route: 018
     Dates: start: 20100906, end: 201010
  10. AMSACRINE [Suspect]
     Active Substance: AMSACRINE
     Indication: Acute myeloid leukaemia
     Route: 042
     Dates: start: 20101027, end: 20110219
  11. PREDNISONE [Suspect]
     Active Substance: PREDNISONE
     Indication: Chronic graft versus host disease
     Route: 048
     Dates: start: 20130513

REACTIONS (1)
  - Acute promyelocytic leukaemia [Recovered/Resolved]

NARRATIVE: CASE EVENT DATE: 20141001
